FAERS Safety Report 4297419-9 (Version None)
Quarter: 2004Q1

REPORT INFORMATION
  Report Type: 
  Country: None (occurrence: None)
  Receive Date: 20040218
  Receipt Date: 20040210
  Transmission Date: 20041129
  Serious: Yes (Death, Other)
  Sender: FDA-Public Use
  Company Number: PHBS2004GB02036

PATIENT
  Age: 54 Year
  Sex: Male

DRUGS (4)
  1. CYCLOSPORINE [Suspect]
     Indication: LIVER TRANSPLANT
     Route: 065
  2. AZATHIOPRINE [Suspect]
     Indication: LIVER TRANSPLANT
     Route: 065
  3. PREDNISOLONE [Suspect]
     Indication: LIVER TRANSPLANT
     Route: 065
  4. TACROLIMUS [Suspect]
     Indication: LIVER TRANSPLANT
     Route: 065

REACTIONS (3)
  - BOWEN'S DISEASE [None]
  - DEATH [None]
  - SKIN NEOPLASM EXCISION [None]
